FAERS Safety Report 4684596-0 (Version None)
Quarter: 2005Q2

REPORT INFORMATION
  Report Type: 
  Country: None (occurrence: None)
  Receive Date: 20050603
  Receipt Date: 20050524
  Transmission Date: 20051028
  Serious: Yes (Other)
  Sender: FDA-Public Use
  Company Number: 2005079162

PATIENT
  Age: 75 Year
  Sex: Male
  Weight: 67.1324 kg

DRUGS (10)
  1. LIPITOR [Suspect]
     Indication: BLOOD CHOLESTEROL INCREASED
     Dosage: 40 MG (40 MG, 1 IN 1 D), ORAL
     Route: 048
  2. NIACIN [Concomitant]
  3. IMDUR [Concomitant]
  4. LASIX [Concomitant]
  5. ALTACE [Concomitant]
  6. KLOR-CON [Concomitant]
  7. FOLGARD (CYANOCOBALAMIN, FOLIC ACID, PYRIDOXINE HYDROCHLORIDE) [Concomitant]
  8. WARFARIN SODIUM [Concomitant]
  9. ASPIRIN [Concomitant]
  10. LOPRESSOR [Concomitant]

REACTIONS (15)
  - AORTIC VALVE INCOMPETENCE [None]
  - CARDIAC PACEMAKER INSERTION [None]
  - DRY MOUTH [None]
  - HIGH DENSITY LIPOPROTEIN DECREASED [None]
  - MITRAL VALVE REPAIR [None]
  - MUSCLE ATROPHY [None]
  - MUSCLE MASS [None]
  - MYALGIA [None]
  - MYOCARDIAL INFARCTION [None]
  - NIGHT SWEATS [None]
  - OEDEMA PERIPHERAL [None]
  - PULMONARY OEDEMA [None]
  - RENAL DISORDER [None]
  - SALIVA ALTERED [None]
  - WEIGHT DECREASED [None]
